FAERS Safety Report 7345994 (Version 2)
Quarter: 2013Q3

REPORT INFORMATION
  Report Type: Spontaneous
  Country: None (occurrence: None)
  Receive Date: 20100322
  Receipt Date: 20130705
  Transmission Date: 20140515
  Serious: Yes (Other)
  Sender: FDA-Public Use
  Company Number: AUR-APL-2010-00684

PATIENT
  Age: 59 Year
  Sex: Female

DRUGS (3)
  1. SIMVASTATIN (SIMVASTATIN) [Suspect]
     Indication: PRODUCT USED FOR UNKNOWN INDICATION
  2. ATENOLOL (NORMITEN) [Concomitant]
  3. ASPIRIN [Concomitant]

REACTIONS (1)
  - Rash morbilliform [None]
